FAERS Safety Report 19090019 (Version 1)
Quarter: 2021Q2

REPORT INFORMATION
  Report Type: Spontaneous
  Country: US (occurrence: US)
  Receive Date: 20210404
  Receipt Date: 20210404
  Transmission Date: 20210717
  Serious: No
  Sender: FDA-Public Use
  Company Number: US-SA-2021SA108158

PATIENT
  Sex: Female

DRUGS (1)
  1. KEVZARA [Suspect]
     Active Substance: SARILUMAB
     Indication: RHEUMATOID ARTHRITIS
     Dosage: UNK
     Route: 058

REACTIONS (5)
  - Hyperhidrosis [Unknown]
  - Fatigue [Unknown]
  - Drug ineffective [Unknown]
  - Joint swelling [Unknown]
  - Arthralgia [Unknown]
